FAERS Safety Report 14161021 (Version 1)
Quarter: 2017Q4

REPORT INFORMATION
  Report Type: Report from Study
  Country: None (occurrence: DE)
  Receive Date: 20171106
  Receipt Date: 20171106
  Transmission Date: 20180321
  Serious: Yes (Hospitalization)
  Sender: FDA-Public Use
  Company Number: DE-ABBVIE-17K-062-2152051-00

PATIENT
  Sex: Male

DRUGS (1)
  1. DUODOPA [Suspect]
     Active Substance: CARBIDOPA\LEVODOPA
     Indication: PARKINSON^S DISEASE
     Dosage: MD 8.6ML; CRD 3.7 ML/H; ED 1.2 ML
     Route: 050
     Dates: start: 20170913

REACTIONS (1)
  - Genitourinary symptom [Unknown]

NARRATIVE: CASE EVENT DATE: 2017
